FAERS Safety Report 8739121 (Version 2)
Quarter: 2012Q4

REPORT INFORMATION
  Report Type: 
  Country: US (occurrence: US)
  Receive Date: 20120823
  Receipt Date: 20121123
  Transmission Date: 20130627
  Serious: Yes (Other)
  Sender: FDA-Public Use
  Company Number: US-PFIZER INC-2012203834

PATIENT
  Sex: Male

DRUGS (1)
  1. LYRICA [Suspect]
     Indication: SEIZURES
     Dosage: UNK
     Route: 048

REACTIONS (4)
  - Drug effect incomplete [Unknown]
  - Convulsion [Unknown]
  - Fall [Unknown]
  - Compression fracture [Unknown]
